FAERS Safety Report 24524654 (Version 2)
Quarter: 2024Q4

REPORT INFORMATION
  Report Type: Spontaneous
  Country: DE (occurrence: DE)
  Receive Date: 20241019
  Receipt Date: 20241126
  Transmission Date: 20250114
  Serious: No
  Sender: UCB
  Company Number: DE-UCBSA-2024053443

PATIENT
  Age: 84 Year
  Sex: Female

DRUGS (1)
  1. NEUPRO [Suspect]
     Active Substance: ROTIGOTINE
     Indication: Restless legs syndrome
     Dosage: 1 MILLIGRAM, UNK
     Dates: start: 20241010

REACTIONS (2)
  - Product adhesion issue [Unknown]
  - Wrong technique in product usage process [Unknown]

NARRATIVE: CASE EVENT DATE: 20241001
